FAERS Safety Report 10412632 (Version 2)
Quarter: 2014Q4

REPORT INFORMATION
  Report Type: Report from Study
  Country: US (occurrence: US)
  Receive Date: 20140827
  Receipt Date: 20141106
  Transmission Date: 20150528
  Serious: Yes (Other)
  Sender: FDA-Public Use
  Company Number: US-ABBVIE-14P-163-1275184-00

PATIENT
  Age: 32 Year
  Sex: Female
  Weight: 67.19 kg

DRUGS (1)
  1. HUMIRA [Suspect]
     Active Substance: ADALIMUMAB
     Indication: CROHN^S DISEASE
     Route: 058
     Dates: start: 20140507

REACTIONS (8)
  - Anal fistula [Not Recovered/Not Resolved]
  - Rectal abscess [Not Recovered/Not Resolved]
  - Bowel movement irregularity [Unknown]
  - Drug effect decreased [Unknown]
  - C-reactive protein increased [Unknown]
  - Platelet count increased [Unknown]
  - Diarrhoea [Unknown]
  - Blood urea nitrogen/creatinine ratio increased [Unknown]

NARRATIVE: CASE EVENT DATE: 20140507
